FAERS Safety Report 5165419-2 (Version None)
Quarter: 2006Q4

REPORT INFORMATION
  Report Type: 
  Country: None (occurrence: None)
  Receive Date: 20061127
  Receipt Date: 20061110
  Transmission Date: 20070319
  Serious: No
  Sender: FDA-Public Use
  Company Number: 36980

PATIENT
  Sex: Female

DRUGS (1)
  1. CHLORAMPHENICOL [Suspect]
     Dosage: OPHT
     Route: 047

REACTIONS (1)
  - EYE SWELLING [None]
